FAERS Safety Report 19815448 (Version 1)
Quarter: 2021Q3

REPORT INFORMATION
  Report Type: Spontaneous
  Country: CA (occurrence: CA)
  Receive Date: 20210910
  Receipt Date: 20210910
  Transmission Date: 20211014
  Serious: Yes (Disabling)
  Sender: FDA-Public Use
  Company Number: CA-TEVA-2021-CA-1949414

PATIENT
  Age: 85 Year
  Sex: Female

DRUGS (4)
  1. LEVOTHYROXINE. [Concomitant]
     Active Substance: LEVOTHYROXINE
  2. RABEPRAZOLE [Concomitant]
     Active Substance: RABEPRAZOLE
  3. CANDESARTAN. [Concomitant]
     Active Substance: CANDESARTAN
  4. VENLAFAXINE HYDROCHLORIDE. [Suspect]
     Active Substance: VENLAFAXINE HYDROCHLORIDE
     Indication: DEPRESSION
     Dosage: 75 MILLIGRAM DAILY;
     Route: 048

REACTIONS (5)
  - Hypovolaemia [Recovered/Resolved]
  - Confusional state [Recovered/Resolved]
  - Inappropriate antidiuretic hormone secretion [Recovered/Resolved]
  - Fall [Recovered/Resolved]
  - Blood sodium decreased [Recovered/Resolved]
